FAERS Safety Report 13540820 (Version 1)
Quarter: 2017Q2

REPORT INFORMATION
  Report Type: Spontaneous
  Country: US (occurrence: US)
  Receive Date: 20170512
  Receipt Date: 20170512
  Transmission Date: 20170830
  Serious: Yes (Life-Threatening, Hospitalization, Other)
  Sender: FDA-Public Use
  Company Number: US-RISING PHARMACEUTICALS, INC.-2017RIS00093

PATIENT
  Age: 62 Year
  Sex: Male
  Weight: 90.7 kg

DRUGS (6)
  1. BABY ASPIRIN [Concomitant]
     Active Substance: ASPIRIN
  2. VITAMIN D [Concomitant]
     Active Substance: CHOLECALCIFEROL
     Dosage: 2000 U, 1X/DAY
  3. UNSPECIFIED BLOOD PRESSURE PILLS [Concomitant]
  4. DIAZEPAM. [Concomitant]
     Active Substance: DIAZEPAM
     Indication: ANXIETY
  5. CETIRIZINE HYDROCHLORIDE. [Suspect]
     Active Substance: CETIRIZINE HYDROCHLORIDE
     Indication: HYPERSENSITIVITY
     Dosage: 1 TABLETS, 1X/DAY
     Route: 048
     Dates: start: 201609
  6. NORCO [Concomitant]
     Active Substance: ACETAMINOPHEN\HYDROCODONE BITARTRATE
     Indication: ARTHRALGIA

REACTIONS (9)
  - Gastrointestinal polyp haemorrhage [Unknown]
  - Tooth disorder [Unknown]
  - Sepsis [Unknown]
  - Hypertension [Unknown]
  - Sinusitis [Not Recovered/Not Resolved]
  - Disorientation [Unknown]
  - Hypoaesthesia [Not Recovered/Not Resolved]
  - Fungal infection [Unknown]
  - Large intestine polyp [Unknown]

NARRATIVE: CASE EVENT DATE: 201610
